FAERS Safety Report 4734530-X (Version None)
Quarter: 2005Q3

REPORT INFORMATION
  Report Type: 
  Country: None (occurrence: None)
  Receive Date: 20050804
  Receipt Date: 20050630
  Transmission Date: 20060218
  Serious: Yes (Other)
  Sender: FDA-Public Use
  Company Number: US-SANOFI-SYNTHELABO-A03200501979

PATIENT
  Age: 16 Year
  Sex: Female

DRUGS (2)
  1. AMBIEN [Suspect]
     Indication: DRUG USE FOR UNKNOWN INDICATION
     Route: 048
     Dates: start: 20030903
  2. ZOLOFT [Suspect]
     Dosage: UNK
     Route: 048

REACTIONS (4)
  - ABNORMAL BEHAVIOUR [None]
  - INTENTIONAL MISUSE [None]
  - OVERDOSE [None]
  - RETROGRADE AMNESIA [None]
